FAERS Safety Report 11199878 (Version 1)
Quarter: 2015Q2

REPORT INFORMATION
  Report Type: Spontaneous
  Country: US (occurrence: None)
  Receive Date: 20150617
  Receipt Date: 20150617
  Transmission Date: 20150821
  Serious: No
  Sender: FDA-Public Use
  Company Number: None

PATIENT
  Sex: Male

DRUGS (4)
  1. VIVITROL [Suspect]
     Active Substance: NALTREXONE
     Indication: ALCOHOLISM
     Route: 030
     Dates: start: 20141202
  2. BUPROPRION XL 300MG TAB [Concomitant]
  3. ALLOPURINOL 100MG TAB [Concomitant]
  4. PAROXETINE 20MG TABS [Concomitant]

REACTIONS (2)
  - Injection site pain [None]
  - Insomnia [None]
